FAERS Safety Report 8908520 (Version 1)
Quarter: 2012Q4

REPORT INFORMATION
  Report Type: 
  Country: US (occurrence: US)
  Receive Date: 20121114
  Receipt Date: 20121114
  Transmission Date: 20130627
  Serious: No
  Sender: FDA-Public Use
  Company Number: US-BAYER-2012-117949

PATIENT
  Sex: Female

DRUGS (3)
  1. BETASERON [Suspect]
     Indication: RELAPSING-REMITTING MULTIPLE SCLEROSIS
     Dosage: UNK UNK, QOD
     Route: 058
     Dates: start: 2009, end: 201206
  2. HYDROCHLOROTHIAZIDE [Concomitant]
  3. BLOOD PRESSURE PILL [Concomitant]

REACTIONS (1)
  - Blood potassium decreased [Not Recovered/Not Resolved]
